FAERS Safety Report 17316084 (Version 1)
Quarter: 2020Q1

REPORT INFORMATION
  Report Type: Spontaneous
  Country: US (occurrence: US)
  Receive Date: 20200124
  Receipt Date: 20200124
  Transmission Date: 20200409
  Serious: No
  Sender: FDA-Public Use
  Company Number: US-ASTRAZENECA-2020SE00489

PATIENT
  Sex: Male
  Weight: 90.3 kg

DRUGS (2)
  1. SYMBICORT [Suspect]
     Active Substance: BUDESONIDE\FORMOTEROL FUMARATE DIHYDRATE
     Indication: ASTHMA
     Dosage: 160/4.5 2 INHALATION TWICE A DAY
     Route: 055
     Dates: start: 2009
  2. SYMBICORT [Suspect]
     Active Substance: BUDESONIDE\FORMOTEROL FUMARATE DIHYDRATE
     Indication: CHRONIC OBSTRUCTIVE PULMONARY DISEASE
     Dosage: 160/4.5 2 INHALATION TWICE A DAY
     Route: 055
     Dates: start: 2009

REACTIONS (10)
  - Ear pain [Unknown]
  - Body height decreased [Unknown]
  - Respiratory tract infection [Not Recovered/Not Resolved]
  - Aortic disorder [Not Recovered/Not Resolved]
  - Hypotonia [Not Recovered/Not Resolved]
  - Blood pressure increased [Recovered/Resolved]
  - Respiration abnormal [Not Recovered/Not Resolved]
  - Heart rate increased [Recovered/Resolved]
  - Hypersensitivity [Unknown]
  - Sinusitis [Not Recovered/Not Resolved]
